FAERS Safety Report 19148733 (Version 1)
Quarter: 2021Q2

REPORT INFORMATION
  Report Type: Spontaneous
  Country: US (occurrence: US)
  Receive Date: 20210416
  Receipt Date: 20210416
  Transmission Date: 20210717
  Serious: No
  Sender: FDA-Public Use
  Company Number: US-GALDERMA-US2021006091

PATIENT
  Sex: Female

DRUGS (1)
  1. DIFFERIN GEL [Suspect]
     Active Substance: ADAPALENE
     Indication: SCAR
     Dosage: 0.1%
     Route: 061

REACTIONS (5)
  - Sensitive skin [Unknown]
  - Drug ineffective for unapproved indication [Recovered/Resolved]
  - Dry skin [Unknown]
  - Product use in unapproved indication [Recovered/Resolved]
  - Skin discomfort [Unknown]
